FAERS Safety Report 8986540 (Version 1)
Quarter: 2012Q4

REPORT INFORMATION
  Report Type: 
  Country: DE (occurrence: DE)
  Receive Date: 20121227
  Receipt Date: 20121227
  Transmission Date: 20130627
  Serious: Yes (Other)
  Sender: FDA-Public Use
  Company Number: DE-AMGEN-DEUSP2012083311

PATIENT
  Age: 55 Year
  Sex: Female

DRUGS (4)
  1. ENBREL [Suspect]
     Indication: RHEUMATOID ARTHRITIS
     Dosage: 50 mg, weekly
     Dates: start: 20111130
  2. PREDNISOLONE [Concomitant]
     Dosage: 7.5 mg, UNK
  3. LEFLUNOMIDE [Concomitant]
     Dosage: UNK
  4. CELEBREX [Concomitant]
     Dosage: 200 mg, UNK

REACTIONS (1)
  - Intervertebral disc protrusion [Not Recovered/Not Resolved]
